FAERS Safety Report 22595414 (Version 1)
Quarter: 2023Q2

REPORT INFORMATION
  Report Type: Spontaneous
  Country: US (occurrence: US)
  Receive Date: 20230613
  Receipt Date: 20230613
  Transmission Date: 20230721
  Serious: Yes (Other)
  Sender: FDA-Public Use
  Company Number: US-ABBVIE-5286826

PATIENT
  Sex: Female

DRUGS (2)
  1. VICODIN [Suspect]
     Active Substance: ACETAMINOPHEN\HYDROCODONE BITARTRATE
     Indication: Product used for unknown indication
     Route: 048
  2. BACLOFEN [Suspect]
     Active Substance: BACLOFEN
     Indication: Product used for unknown indication
     Route: 065

REACTIONS (11)
  - Relapsing-remitting multiple sclerosis [Unknown]
  - Somnolence [Unknown]
  - Anxiety [Unknown]
  - Palpitations [Unknown]
  - Muscle spasms [Unknown]
  - Hyperthyroidism [Unknown]
  - Formication [Unknown]
  - Meteoropathy [Unknown]
  - Headache [Unknown]
  - Mobility decreased [Unknown]
  - Hypertension [Unknown]
